FAERS Safety Report 10341360 (Version 4)
Quarter: 2014Q3

REPORT INFORMATION
  Report Type: Report from Study
  Country: DE (occurrence: DE)
  Receive Date: 20140725
  Receipt Date: 20140827
  Transmission Date: 20150326
  Serious: Yes (Hospitalization)
  Sender: FDA-Public Use
  Company Number: DE-ROCHE-1240452

PATIENT
  Age: 85 Year
  Sex: Male
  Weight: 94 kg

DRUGS (3)
  1. VISMODEGIB [Suspect]
     Active Substance: VISMODEGIB
     Indication: BASAL CELL CARCINOMA
     Dosage: DATE OF LAST DOSE PRIOR TO SAE: 20/JUN/2013
     Route: 048
     Dates: start: 20121206, end: 20130620
  2. FOLSAN [Concomitant]
     Active Substance: FOLIC ACID
     Indication: DYSGEUSIA
     Route: 065
     Dates: start: 20130328
  3. CLINDAMYCIN [Concomitant]
     Active Substance: CLINDAMYCIN\CLINDAMYCIN PHOSPHATE
     Route: 065
     Dates: start: 20121030, end: 20121123

REACTIONS (2)
  - Clostridium difficile colitis [Recovered/Resolved]
  - Gastric ulcer [Recovering/Resolving]

NARRATIVE: CASE EVENT DATE: 20130620
